FAERS Safety Report 21311241 (Version 2)
Quarter: 2022Q4

REPORT INFORMATION
  Report Type: Spontaneous
  Country: US (occurrence: None)
  Receive Date: 20220909
  Receipt Date: 20221005
  Transmission Date: 20230113
  Serious: Yes (Disabling)
  Sender: FDA-Public Use
  Company Number: 2022A306443

PATIENT
  Age: 74 Year
  Sex: Male
  Weight: 86.2 kg

DRUGS (16)
  1. TEZSPIRE [Suspect]
     Active Substance: TEZEPELUMAB-EKKO
     Indication: Asthma
     Dosage: 210.0MG UNKNOWN
     Route: 065
     Dates: start: 20220216, end: 20220615
  2. TEZSPIRE [Suspect]
     Active Substance: TEZEPELUMAB-EKKO
     Indication: Asthma
     Dosage: 210.0MG UNKNOWN
     Route: 065
     Dates: start: 20220216, end: 20220615
  3. BUDESONIDE [Suspect]
     Active Substance: BUDESONIDE
     Indication: Asthma
     Dosage: 5.0MG UNKNOWN
     Route: 055
  4. INSULIN NOS [Concomitant]
     Active Substance: INSULIN NOS
  5. MONTELUKAST [Concomitant]
     Active Substance: MONTELUKAST SODIUM
  6. TRAMAZOLINE [Concomitant]
     Active Substance: TRAMAZOLINE
  7. REPAGLINIDE [Concomitant]
     Active Substance: REPAGLINIDE
  8. PANTOPRAZOLE [Concomitant]
     Active Substance: PANTOPRAZOLE
  9. LEVOCETIRIZINE [Concomitant]
     Active Substance: LEVOCETIRIZINE
  10. GLIMEPIRIDE [Concomitant]
     Active Substance: GLIMEPIRIDE
  11. RABEPRAZOLE SODIUM [Concomitant]
     Active Substance: RABEPRAZOLE SODIUM
  12. AMLODIPINE [Concomitant]
     Active Substance: AMLODIPINE BESYLATE
  13. ESCITALOPRAM [Concomitant]
     Active Substance: ESCITALOPRAM OXALATE
  14. ALLOPURINOL [Concomitant]
     Active Substance: ALLOPURINOL
  15. FAMOTIDINE [Concomitant]
     Active Substance: FAMOTIDINE
  16. REPAGLINIDE [Concomitant]
     Active Substance: REPAGLINIDE

REACTIONS (1)
  - Deafness [Not Recovered/Not Resolved]

NARRATIVE: CASE EVENT DATE: 20220615
